FAERS Safety Report 7047251-8 (Version None)
Quarter: 2010Q4

REPORT INFORMATION
  Report Type: 
  Country: None (occurrence: None)
  Receive Date: 20101014
  Receipt Date: 20101014
  Transmission Date: 20110411
  Serious: No
  Sender: FDA-Public Use
  Company Number: None

PATIENT
  Age: 78 Year
  Sex: Female
  Weight: 48.6256 kg

DRUGS (1)
  1. DOXIL [Suspect]
     Indication: BREAST CANCER
     Dosage: 29 MG IVSS PER PAC
     Route: 042
     Dates: start: 20100929

REACTIONS (2)
  - NAUSEA [None]
  - THROAT TIGHTNESS [None]
